FAERS Safety Report 6730278-0 (Version None)
Quarter: 2010Q2

REPORT INFORMATION
  Report Type: 
  Country: None (occurrence: None)
  Receive Date: 20100518
  Receipt Date: 20100506
  Transmission Date: 20101027
  Serious: Yes (Life-Threatening)
  Sender: FDA-Public Use
  Company Number: DE-ROCHE-688380

PATIENT
  Sex: Female

DRUGS (6)
  1. ROACTEMRA [Suspect]
     Dosage: 4 MOST RECENT INFUSIONS PRIOR EVENT: 24 AUG 09, 21 SEP 09, 20 OCT 09 AND 17 NOV 09
     Route: 042
     Dates: start: 20090729
  2. ROACTEMRA [Suspect]
     Route: 042
     Dates: start: 20100126
  3. PREDNISOLONE [Suspect]
     Dosage: GIVEN FOR YEARS
     Route: 048
  4. METEX [Suspect]
     Dosage: GIVEN FOR YEARS
     Route: 058
     Dates: end: 20100201
  5. CELEBREX [Concomitant]
     Dosage: GIVEN FOR YEARS
     Route: 048
  6. INSULIN [Concomitant]
     Dosage: GIVEN DAILY

REACTIONS (1)
  - COLON CANCER [None]
